FAERS Safety Report 6507039-0 (Version None)
Quarter: 2009Q4

REPORT INFORMATION
  Report Type: 
  Country: None (occurrence: None)
  Receive Date: 20091127
  Receipt Date: 20090423
  Transmission Date: 20100525
  Serious: Yes (Hospitalization)
  Sender: FDA-Public Use
  Company Number: US200904005368

PATIENT
  Age: 51 Year
  Sex: Female
  Weight: 77.1 kg

DRUGS (2)
  1. BYETTA [Suspect]
     Indication: DIABETES MELLITUS
     Dosage: 10 UG, 2/D, SUBCUTANEOUS
     Route: 058
     Dates: start: 20060915, end: 20081201
  2. EXENATIDE 10MCG PEN, DISPOSABLE DEVICE (EXENATIDE PEN (10MCG))  PEN,DI [Concomitant]

REACTIONS (4)
  - GASTRIC DISORDER [None]
  - MALAISE [None]
  - PAIN [None]
  - PANCREATITIS [None]
